FAERS Safety Report 16445136 (Version 4)
Quarter: 2019Q4

REPORT INFORMATION
  Report Type: Spontaneous
  Country: SK (occurrence: SK)
  Receive Date: 20190618
  Receipt Date: 20191001
  Transmission Date: 20200122
  Serious: Yes (Death, Hospitalization, Other)
  Sender: FDA-Public Use
  Company Number: SK-MYLANLABS-2019M1056500

PATIENT
  Age: 53 Year
  Sex: Female

DRUGS (15)
  1. FLUOROURACIL. [Suspect]
     Active Substance: FLUOROURACIL
     Indication: PANCREATIC CARCINOMA METASTATIC
     Dosage: 600 MILLIGRAM/SQ. METER, CYCLE (1 CYCLE ADMNISTERED ON D1,2)
     Route: 040
     Dates: start: 2017, end: 2017
  2. CISPLATIN. [Suspect]
     Active Substance: CISPLATIN
     Indication: PANCREATIC CARCINOMA
     Dosage: 50 MILLIGRAM/SQ. METER, CYCLE (1 CYCLE INCLUDED ADMINISTRATION ON DAY 1, 15)
     Route: 042
     Dates: start: 201703, end: 201706
  3. CISPLATIN. [Suspect]
     Active Substance: CISPLATIN
     Dosage: 25 MILLIGRAM/SQ. METER, CYCLE (1 CYCLE INCLUDED ADMINISTRATION ON DAY 1, 15)
     Route: 042
  4. FLUOROURACIL. [Suspect]
     Active Substance: FLUOROURACIL
     Dosage: CYLE 2, REDUCTION IN THE CYTOSTATIC DOSE TO 50% DUE TO THE OVERALL WORSENING OF PS
     Route: 042
     Dates: start: 201707
  5. CISPLATIN. [Suspect]
     Active Substance: CISPLATIN
     Dosage: 25 MILLIGRAM/SQ. METER, CYCLE (1 CYCLE INCLUDED ADMINISTRATION ON DAY 1, 15)
     Route: 042
     Dates: start: 201703, end: 201706
  6. IRINOTECAN [Suspect]
     Active Substance: IRINOTECAN
     Dosage: 90 MILLIGRAM/SQ. METER, CYCLE (1 CYCLE INCLUDED ADMINISTRATION ON DAY 1)
     Route: 042
     Dates: start: 201707
  7. FLUOROURACIL. [Suspect]
     Active Substance: FLUOROURACIL
     Dosage: 400 MG/M2 DAILY
     Route: 040
     Dates: start: 2017, end: 2017
  8. GEMCITABINE. [Suspect]
     Active Substance: GEMCITABINE
     Indication: PANCREATIC CARCINOMA
     Dosage: 1000 MILLIGRAM/SQ. METER, CYCLE (1 CYCLE INCLUDED ADMINISTRATION ON DAY 1, 8, 15)
     Route: 042
     Dates: start: 201703, end: 201706
  9. LEVOFOLIC [Suspect]
     Active Substance: LEUCOVORIN
     Indication: PANCREATIC CARCINOMA
     Dosage: 200 MILLIGRAM/SQ. METER, CYCLE (1 CYCLE INCLUDED ADMINISTRATION ON DAY 1)
     Route: 042
     Dates: start: 2017, end: 2017
  10. IRINOTECAN [Suspect]
     Active Substance: IRINOTECAN
     Indication: PANCREATIC CARCINOMA METASTATIC
     Dosage: 90 MILLIGRAM/SQ. METER, CYCLE (1 CYCLE INCLUDED ADMINISTRATION ON DAY 1)
     Route: 042
     Dates: start: 2017, end: 2017
  11. LEVOFOLIC [Suspect]
     Active Substance: LEUCOVORIN
     Dosage: 100 MILLIGRAM/SQ. METER, CYCLE (1 CYCLE INCLUDED ADMINISTRATION ON DAY 1)
     Route: 042
     Dates: start: 201707
  12. FLUOROURACIL. [Suspect]
     Active Substance: FLUOROURACIL
     Indication: PANCREATIC CARCINOMA
     Dosage: 1200 MILLIGRAM/SQ. METER, CYCLE (1 CYCLE ADMNISTERED ON D1,2)
     Route: 040
     Dates: start: 2017, end: 2017
  13. GEMCITABINE. [Suspect]
     Active Substance: GEMCITABINE
     Dosage: 500 MILLIGRAM/SQ. METER, CYCLE (1 CYCLE INCLUDED ADMINISTRATION ON DAY 1, 8, 15)
     Route: 042
     Dates: start: 201703, end: 201706
  14. LEVOFOLIC [Suspect]
     Active Substance: LEUCOVORIN
     Indication: PANCREATIC CARCINOMA METASTATIC
     Dosage: 100 MILLIGRAM/SQ. METER, CYCLE (1 CYCLE INCLUDED ADMINISTRATION ON DAY 1)
     Route: 042
     Dates: start: 2017, end: 2017
  15. IRINOTECAN [Suspect]
     Active Substance: IRINOTECAN
     Indication: PANCREATIC CARCINOMA
     Dosage: 180 MILLIGRAM/SQ. METER, CYCLE (1 CYCLE INCLUDED ADMINISTRATION ON DAY 1)
     Route: 042
     Dates: start: 2017, end: 2017

REACTIONS (15)
  - Cholestasis [Unknown]
  - Liver disorder [Not Recovered/Not Resolved]
  - Hepatic failure [Not Recovered/Not Resolved]
  - Gastrointestinal toxicity [Unknown]
  - Anaemia [Recovering/Resolving]
  - Performance status decreased [Unknown]
  - Nutritional condition abnormal [Unknown]
  - Disease progression [Fatal]
  - Haematotoxicity [Unknown]
  - Pancreatic carcinoma metastatic [Unknown]
  - Nausea [Recovering/Resolving]
  - Thrombocytopenia [Recovering/Resolving]
  - Asthenia [Not Recovered/Not Resolved]
  - Abdominal pain [Unknown]
  - Decreased appetite [Recovering/Resolving]

NARRATIVE: CASE EVENT DATE: 2017
